FAERS Safety Report 7691298-5 (Version None)
Quarter: 2011Q3

REPORT INFORMATION
  Report Type: 
  Country: None (occurrence: None)
  Receive Date: 20110818
  Receipt Date: 20110808
  Transmission Date: 20111222
  Serious: Yes (Other)
  Sender: FDA-Public Use
  Company Number: FR-ASTRAZENECA-2011SE45921

PATIENT
  Age: 17144 Day
  Sex: Male
  Weight: 95 kg

DRUGS (7)
  1. LEVOTHYROXINE SODIUM [Suspect]
  2. DESLORATADINE [Suspect]
  3. NEXIUM [Suspect]
     Route: 048
  4. VANDETANIB [Suspect]
     Indication: THYROID CANCER
     Route: 048
     Dates: start: 20110411, end: 20110701
  5. VANDETANIB [Suspect]
     Route: 048
     Dates: start: 20110701
  6. PREVISCAN [Suspect]
  7. CALCIUM CARBONATE [Suspect]

REACTIONS (1)
  - ELECTROCARDIOGRAM QT PROLONGED [None]
